FAERS Safety Report 18673463 (Version 1)
Quarter: 2020Q4

REPORT INFORMATION
  Report Type: Spontaneous
  Country: JP (occurrence: JP)
  Receive Date: 20201228
  Receipt Date: 20201228
  Transmission Date: 20210114
  Serious: Yes (Other)
  Sender: FDA-Public Use
  Company Number: JP-009507513-2011JPN004209J

PATIENT
  Age: 77 Year
  Sex: Male

DRUGS (2)
  1. KEYTRUDA [Suspect]
     Active Substance: PEMBROLIZUMAB
     Indication: NON-SMALL CELL LUNG CANCER
     Dosage: 200 MILLIGRAM, Q3W
     Route: 041
     Dates: start: 20200804, end: 20200915
  2. KEYTRUDA [Suspect]
     Active Substance: PEMBROLIZUMAB
     Dosage: 200 MILLIGRAM, Q3W
     Route: 041
     Dates: start: 202012

REACTIONS (7)
  - Hypothalamo-pituitary disorder [Recovering/Resolving]
  - Myasthenia gravis [Unknown]
  - Blood creatine phosphokinase increased [Recovering/Resolving]
  - Immune-mediated hypothyroidism [Recovered/Resolved]
  - Hyperthyroidism [Recovered/Resolved]
  - Eyelid ptosis [Unknown]
  - Amylase increased [Unknown]

NARRATIVE: CASE EVENT DATE: 2020
